FAERS Safety Report 11610852 (Version 1)
Quarter: 2015Q4

REPORT INFORMATION
  Report Type: Spontaneous
  Country: BR (occurrence: BR)
  Receive Date: 20151008
  Receipt Date: 20151008
  Transmission Date: 20160304
  Serious: Yes (Hospitalization)
  Sender: FDA-Public Use
  Company Number: BR-ELI_LILLY_AND_COMPANY-BR201508000330

PATIENT
  Age: 47 Year
  Sex: Male
  Weight: 82 kg

DRUGS (10)
  1. HUMULIN N [Suspect]
     Active Substance: INSULIN HUMAN
     Indication: TYPE 1 DIABETES MELLITUS
     Dosage: 42 IU, EACH MORNING
     Route: 058
     Dates: start: 2010
  2. HUMALOG [Suspect]
     Active Substance: INSULIN LISPRO
     Indication: TYPE 1 DIABETES MELLITUS
     Dosage: UNK, UNKNOWN
     Route: 065
     Dates: end: 2015
  3. ENALAPRIL [Concomitant]
     Active Substance: ENALAPRIL
     Indication: HYPERTENSION
     Dosage: UNK, UNKNOWN
     Route: 065
     Dates: start: 2010
  4. HUMULIN R [Suspect]
     Active Substance: INSULIN HUMAN
     Dosage: 4 IU, AT DINNER
     Route: 058
     Dates: start: 2015
  5. NIFEDIPINE. [Concomitant]
     Active Substance: NIFEDIPINE
     Indication: HYPERTENSION
     Dosage: UNK, UNKNOWN
     Route: 065
  6. HUMULIN R [Suspect]
     Active Substance: INSULIN HUMAN
     Dosage: 4 IU, AT LUNCH
     Route: 058
     Dates: start: 2015
  7. ATENOLOL. [Concomitant]
     Active Substance: ATENOLOL
     Indication: HYPERTENSION
     Dosage: UNK, UNKNOWN
     Route: 065
     Dates: start: 2010
  8. HUMULIN N [Suspect]
     Active Substance: INSULIN HUMAN
     Dosage: 24 IU, AT LUNCH
     Route: 058
  9. SIMVASTATIN. [Concomitant]
     Active Substance: SIMVASTATIN
     Indication: BLOOD CHOLESTEROL ABNORMAL
     Dosage: UNK, UNKNOWN
     Route: 065
     Dates: start: 2010
  10. HUMULIN R [Suspect]
     Active Substance: INSULIN HUMAN
     Indication: TYPE 1 DIABETES MELLITUS
     Dosage: 4 IU, EACH MORNING
     Route: 058
     Dates: start: 2015

REACTIONS (5)
  - Intervertebral disc protrusion [Unknown]
  - Dysphonia [Unknown]
  - Hypertension [Unknown]
  - Blood glucose increased [Unknown]
  - Blood glucose fluctuation [Unknown]

NARRATIVE: CASE EVENT DATE: 201411
